FAERS Safety Report 17346796 (Version 1)
Quarter: 2020Q1

REPORT INFORMATION
  Report Type: Report from Study
  Country: US (occurrence: US)
  Receive Date: 20200129
  Receipt Date: 20200129
  Transmission Date: 20200409
  Serious: No
  Sender: FDA-Public Use
  Company Number: US-EXELIXIS-CABO-19021870

PATIENT
  Sex: Male

DRUGS (2)
  1. CABOMETYX [Suspect]
     Active Substance: CABOZANTINIB S-MALATE
     Dosage: 60 MG, QD (AM W/O FOOD)
     Dates: start: 20190711
  2. CABOMETYX [Suspect]
     Active Substance: CABOZANTINIB S-MALATE
     Indication: PRODUCT USED FOR UNKNOWN INDICATION
     Dosage: 60 MG, QD (AM W/O FOOD)
     Dates: start: 20190524, end: 20190701

REACTIONS (17)
  - Blister [Unknown]
  - Dry skin [Recovered/Resolved]
  - Decreased appetite [Recovered/Resolved]
  - Oral mucosal blistering [Unknown]
  - Back pain [Recovering/Resolving]
  - Neoplasm malignant [Not Recovered/Not Resolved]
  - Impaired healing [Unknown]
  - Vomiting [Unknown]
  - Skin exfoliation [Unknown]
  - Dry mouth [Recovered/Resolved]
  - Skin ulcer [Recovering/Resolving]
  - Dyspnoea [Recovered/Resolved]
  - Liver function test increased [Unknown]
  - Fungal infection [Unknown]
  - Pain [Unknown]
  - Stomatitis [Recovered/Resolved]
  - Nausea [Unknown]
